FAERS Safety Report 23803855 (Version 2)
Quarter: 2024Q2

REPORT INFORMATION
  Report Type: Spontaneous
  Country: BR (occurrence: BR)
  Receive Date: 20240501
  Receipt Date: 20240509
  Transmission Date: 20240716
  Serious: Yes (Hospitalization)
  Sender: FDA-Public Use
  Company Number: BR-BIOMARINAP-BR-2024-157607

PATIENT

DRUGS (2)
  1. VOXZOGO [Suspect]
     Active Substance: VOSORITIDE
     Indication: Osteochondrodysplasia
     Dosage: 0.35 MILLILITER, QD
     Route: 058
     Dates: start: 202307
  2. Calceos d [Concomitant]
     Indication: Product used for unknown indication

REACTIONS (6)
  - Obstructive sleep apnoea syndrome [Recovered/Resolved]
  - Tonsillar hypertrophy [Recovered/Resolved]
  - Adenoidal hypertrophy [Recovered/Resolved]
  - Snoring [Recovered/Resolved]
  - Otitis media [Unknown]
  - Rhinitis allergic [Unknown]
